FAERS Safety Report 9165142 (Version 1)
Quarter: 2013Q1

REPORT INFORMATION
  Report Type: Spontaneous
  Country: AU (occurrence: None)
  Receive Date: 20130227
  Receipt Date: 20130227
  Transmission Date: 20140127
  Serious: Yes (Hospitalization)
  Sender: FDA-Public Use
  Company Number: ACET20130003

PATIENT
  Age: 80 Year
  Sex: Male
  Weight: 40 kg

DRUGS (11)
  1. Q-PAP [Suspect]
     Route: 048
  2. Q-PAP [Suspect]
     Route: 048
  3. Q-PAP [Suspect]
     Route: 048
  4. Q-PAP [Suspect]
     Route: 048
  5. Q-PAP [Suspect]
     Route: 048
  6. Q-PAP [Suspect]
     Route: 048
  7. ISONIAZID [Suspect]
  8. RIFAMPICIN [Suspect]
  9. PYRAZINAMIDE [Suspect]
  10. ETHAMBUTOL [Suspect]
  11. PANTOPRAZOLE [Suspect]

REACTIONS (1)
  - Hepatotoxicity [None]
